FAERS Safety Report 7813473-9 (Version None)
Quarter: 2011Q4

REPORT INFORMATION
  Report Type: 
  Country: None (occurrence: None)
  Receive Date: 20111014
  Receipt Date: 20111003
  Transmission Date: 20120403
  Serious: No
  Sender: FDA-Public Use
  Company Number: US-BIOGENIDEC-2011BI028670

PATIENT
  Age: 58 Year
  Sex: Female

DRUGS (2)
  1. TYSABRI [Suspect]
     Indication: MULTIPLE SCLEROSIS
     Route: 042
     Dates: start: 20110711
  2. COPAXONE [Concomitant]
     Indication: LYMPHOEDEMA

REACTIONS (4)
  - PAIN IN EXTREMITY [None]
  - HEADACHE [None]
  - FATIGUE [None]
  - HERPES ZOSTER [None]
